FAERS Safety Report 20345239 (Version 1)
Quarter: 2022Q1

REPORT INFORMATION
  Report Type: Spontaneous
  Country: US (occurrence: None)
  Receive Date: 20220114
  Receipt Date: 20220114
  Transmission Date: 20220424
  Serious: No
  Sender: FDA-Public Use
  Company Number: None

PATIENT
  Age: 62 Year
  Sex: Male
  Weight: 94.5 kg

DRUGS (3)
  1. RISPERIDONE [Suspect]
     Active Substance: RISPERIDONE
     Dosage: OTHER QUANTITY : 1 TABLET(S);?FREQUENCY : DAILY;?
     Route: 048
     Dates: start: 20211101
  2. PRESCRIPTION MOISTURIZERS [Concomitant]
  3. TYLENOL [Concomitant]

REACTIONS (7)
  - Tremor [None]
  - Breast enlargement [None]
  - Pruritus [None]
  - Product substitution issue [None]
  - Product complaint [None]
  - Product measured potency issue [None]
  - Product quality issue [None]

NARRATIVE: CASE EVENT DATE: 20211101
